FAERS Safety Report 16083752 (Version 2)
Quarter: 2024Q1

REPORT INFORMATION
  Report Type: Spontaneous
  Country: US (occurrence: US)
  Receive Date: 20190318
  Receipt Date: 20240328
  Transmission Date: 20240410
  Serious: No
  Sender: FDA-Public Use
  Company Number: US-KAMADA LIMITED-2018US012907

PATIENT

DRUGS (3)
  1. KEDRAB [Suspect]
     Active Substance: HUMAN RABIES VIRUS IMMUNE GLOBULIN
     Indication: Animal bite
     Dosage: UNK; ONCE
     Route: 058
     Dates: start: 20181129
  2. RABIES VACCINE [Concomitant]
     Active Substance: RABIES VACCINE
     Dosage: UNK
     Route: 065
     Dates: start: 20181129
  3. TETANUS TOXOID, REDUCED DIPHTHERIA TOXOID AND ACELLULAR PERTUSSIS VACC [Concomitant]
     Active Substance: TETANUS TOXOID, REDUCED DIPHTHERIA TOXOID AND ACELLULAR PERTUSSIS VACCINE ADSORBED, TDAP
     Dosage: UNK
     Route: 065
     Dates: start: 20181129

REACTIONS (4)
  - Respiratory disorder [Recovering/Resolving]
  - Influenza like illness [Recovering/Resolving]
  - Injection site bruising [Recovering/Resolving]
  - Fatigue [Recovering/Resolving]

NARRATIVE: CASE EVENT DATE: 20181129
